FAERS Safety Report 7792592-X (Version None)
Quarter: 2011Q4

REPORT INFORMATION
  Report Type: 
  Country: None (occurrence: None)
  Receive Date: 20111003
  Receipt Date: 20110928
  Transmission Date: 20120403
  Serious: Yes (Death)
  Sender: FDA-Public Use
  Company Number: US-CELGENEUS-163-21880-11093508

PATIENT
  Sex: Female

DRUGS (8)
  1. LEVOXYL [Concomitant]
     Dosage: 75 MICROGRAM
     Route: 048
  2. REVLIMID [Suspect]
     Dosage: 5 MILLIGRAM
     Route: 048
     Dates: start: 20110902, end: 20110901
  3. REVLIMID [Suspect]
     Indication: MULTIPLE MYELOMA
     Dosage: 10 MILLIGRAM
     Route: 048
     Dates: start: 20110323, end: 20110501
  4. BUMEX [Concomitant]
     Dosage: 1 MILLIGRAM
     Route: 048
  5. LIPITOR [Concomitant]
     Dosage: 40 MILLIGRAM
     Route: 048
  6. LEXAPRO [Concomitant]
     Dosage: 10 MILLIGRAM
     Route: 048
  7. LEVOBUNOLOL [Concomitant]
     Dosage: .25 PERCENT
     Route: 047
  8. METOLAZONE [Concomitant]
     Dosage: 5 MILLIGRAM
     Route: 048

REACTIONS (1)
  - DEATH [None]
